FAERS Safety Report 21111515 (Version 8)
Quarter: 2023Q1

REPORT INFORMATION
  Report Type: Report from Study
  Country: JP (occurrence: JP)
  Receive Date: 20220721
  Receipt Date: 20230125
  Transmission Date: 20230418
  Serious: Yes (Hospitalization, Other)
  Sender: FDA-Public Use
  Company Number: JP-CHUGAI-2022027525

PATIENT
  Age: 59 Year
  Sex: Female
  Weight: 48.5 kg

DRUGS (45)
  1. BEVACIZUMAB [Suspect]
     Active Substance: BEVACIZUMAB
     Indication: Hormone receptor positive HER2 negative breast cancer
     Dosage: 10 MILLIGRAM/KILOGRAM, DAY1, 15
     Route: 041
     Dates: start: 20220215
  2. BEVACIZUMAB [Suspect]
     Active Substance: BEVACIZUMAB
     Indication: Breast cancer
     Dosage: 10 MILLIGRAM/KILOGRAM, DAY1, 15
     Route: 041
     Dates: start: 20220907
  3. ATEZOLIZUMAB [Suspect]
     Active Substance: ATEZOLIZUMAB
     Indication: Hormone receptor positive HER2 negative breast cancer
     Dosage: 840 MILLIGRAM, DAY1, 15?MOST RECENT DOSE : 14/JUN/2022
     Route: 041
     Dates: start: 20220215
  4. ATEZOLIZUMAB [Suspect]
     Active Substance: ATEZOLIZUMAB
     Indication: Breast cancer
  5. PACLITAXEL [Suspect]
     Active Substance: PACLITAXEL
     Indication: Hormone receptor positive HER2 negative breast cancer
     Dosage: 90 MILLIGRAM/SQ. METER, DAY1, 8, 15
     Route: 041
     Dates: start: 20220215
  6. PACLITAXEL [Suspect]
     Active Substance: PACLITAXEL
     Indication: Breast cancer
     Dosage: 90 MILLIGRAM/SQ. METER, DAY1, 8, 15
     Route: 041
     Dates: start: 20220907
  7. SOLIFENACIN SUCCINATE [Concomitant]
     Active Substance: SOLIFENACIN SUCCINATE
     Indication: Neurogenic bladder
     Dosage: 5 MILLIGRAM, QD
     Route: 048
  8. TEPRENONE [Concomitant]
     Active Substance: TEPRENONE
     Indication: Gastritis
     Dosage: 5 MILLIGRAM, PRN
     Route: 048
  9. CLOTIAZEPAM [Concomitant]
     Active Substance: CLOTIAZEPAM
     Indication: Depression
     Dosage: 5 MILLIGRAM, PRN
     Route: 048
  10. BUTROPIUM BROMIDE [Concomitant]
     Active Substance: BUTROPIUM BROMIDE
     Indication: Gastritis
     Dosage: 10 MILLIGRAM, PRN
     Route: 048
  11. SODIUM GUALENATE [Concomitant]
     Active Substance: SODIUM GUALENATE
     Indication: Stomatitis
     Dosage: UNK UNK, PRN
  12. HEPARINOID [Concomitant]
     Indication: Dry skin prophylaxis
     Dosage: UNK UNK, PRN
     Route: 061
  13. BIFONAZOLE [Concomitant]
     Active Substance: BIFONAZOLE
     Indication: Tinea infection
     Dosage: UNK, PRN
     Route: 061
  14. SP [DEQUALINIUM CHLORIDE] [Concomitant]
     Indication: Stomatitis
     Dosage: 25 MILLIGRAM, PRN
     Route: 048
  15. ONGLYZA [Concomitant]
     Active Substance: SAXAGLIPTIN HYDROCHLORIDE
     Indication: Diabetes mellitus
     Dosage: 5 MILLIGRAM, QD
     Route: 048
  16. FAMOTIDINE [Concomitant]
     Active Substance: FAMOTIDINE
     Indication: Gastritis
     Dosage: 10 MILLIGRAM, PRN
     Route: 048
  17. LOXOPROFEN [Concomitant]
     Active Substance: LOXOPROFEN
     Indication: Cancer pain
     Dosage: 60 MILLIGRAM, PRN
     Route: 048
  18. LOXOPROFEN [Concomitant]
     Active Substance: LOXOPROFEN
     Indication: Myalgia
  19. REBAMIPIDE [Concomitant]
     Active Substance: REBAMIPIDE
     Indication: Gastritis
     Dosage: 100 MILLIGRAM, PRN
     Route: 048
  20. ROSUVASTATIN CALCIUM [Concomitant]
     Active Substance: ROSUVASTATIN CALCIUM
     Indication: Hyperlipidaemia
     Dosage: 2.5 MILLIGRAM, QD
     Route: 048
  21. OMEGA-3-ACID ETHYL ESTERS [Concomitant]
     Active Substance: OMEGA-3-ACID ETHYL ESTERS
     Indication: Hyperlipidaemia
     Dosage: 2 GRAM, QD
     Route: 048
  22. KETOPROFEN [Concomitant]
     Active Substance: KETOPROFEN
     Indication: Cancer pain
     Dosage: 1 DOSAGE FORM, PRN
     Route: 061
  23. MAGNESIUM OXIDE [Concomitant]
     Active Substance: MAGNESIUM OXIDE
     Indication: Constipation
     Dosage: 750 MILLIGRAM, PRN
     Route: 048
  24. DEXAMETHASONE SODIUM PHOSPHATE [Concomitant]
     Active Substance: DEXAMETHASONE SODIUM PHOSPHATE
     Indication: Premedication
     Dosage: 6.6 MILLIGRAM
     Route: 042
     Dates: start: 20220215
  25. GASTER [Concomitant]
     Active Substance: FAMOTIDINE
     Indication: Premedication
     Dosage: 20 MILLIGRAM
     Route: 042
     Dates: start: 20220215
  26. DIPHENHYDRAMINE [Concomitant]
     Active Substance: DIPHENHYDRAMINE
     Indication: Premedication
     Dosage: 5 DOSAGE FORM
     Route: 048
  27. BROTIZOLAM [Concomitant]
     Active Substance: BROTIZOLAM
     Indication: Insomnia
     Dosage: 0.25 MILLIGRAM, PRN
     Route: 048
  28. TRAMADOL [Concomitant]
     Active Substance: TRAMADOL
     Indication: Myalgia
     Dosage: 25 MILLIGRAM, PRN
     Route: 048
  29. METOCLOPRAMIDE [Concomitant]
     Active Substance: METOCLOPRAMIDE
     Indication: Nausea
     Dosage: 5 MILLIGRAM, PRN
     Route: 048
  30. VOLTAREN [Concomitant]
     Active Substance: DICLOFENAC SODIUM
     Indication: Migraine
     Dosage: 50 MILLIGRAM, PRN
     Route: 054
     Dates: start: 20220426
  31. IPRAGLIFLOZIN L-PROLINE [Concomitant]
     Active Substance: IPRAGLIFLOZIN L-PROLINE
     Indication: Diabetes mellitus
     Dosage: 50 MILLIGRAM, QD
     Route: 048
     Dates: start: 20220529
  32. GLYCOSAMINOGLYCANS [Concomitant]
     Active Substance: GLYCOSAMINOGLYCANS
     Indication: Dry skin prophylaxis
     Dosage: UNK UNK, PRN
     Route: 061
     Dates: start: 20220529
  33. FLAVIN ADENINE DINUCLEOTIDE [Concomitant]
     Active Substance: FLAVIN ADENINE DINUCLEOTIDE
     Indication: Stomatitis
     Dosage: 5 MILLIGRAM, TID
     Route: 048
  34. VITANEURIN [Concomitant]
     Indication: Stomatitis
     Dosage: 1 DOSAGE FORM, TID
     Route: 048
  35. MYTEAR [BORIC ACID;POTASSIUM CHLORIDE;SODIUM BICARBONATE;SODIUM CHLORI [Concomitant]
     Indication: Dry eye
     Dosage: UNK UNK, TID
     Route: 047
     Dates: start: 20220710
  36. LANSOPRAZOLE [Concomitant]
     Active Substance: LANSOPRAZOLE
     Indication: Gastritis
     Dosage: 15 MILLIGRAM, QD
     Route: 048
     Dates: start: 20220711
  37. RIKKOSAN [Concomitant]
     Indication: Osteonecrosis of jaw
     Dosage: 2.5 GRAM, QD
     Route: 048
     Dates: start: 20220725
  38. ROZEREM [Concomitant]
     Active Substance: RAMELTEON
     Indication: Depression
     Dosage: 8 MILLIGRAM, QD
     Route: 048
     Dates: start: 20220725
  39. LOMERIZINE HYDROCHLORIDE [Concomitant]
     Active Substance: LOMERIZINE HYDROCHLORIDE
     Indication: Migraine
     Dosage: 5 MILLIGRAM, BID
     Route: 048
     Dates: start: 20220725
  40. DULOXETINE HYDROCHLORIDE [Concomitant]
     Active Substance: DULOXETINE HYDROCHLORIDE
     Indication: Depression
     Dosage: 20 MILLIGRAM, BID
     Route: 048
     Dates: start: 20220725
  41. TOFISOPAM [Concomitant]
     Active Substance: TOFISOPAM
     Indication: Depression
     Dosage: 50 MILLIGRAM, TID
     Route: 048
     Dates: start: 20220725
  42. TRAMCET [Concomitant]
     Active Substance: ACETAMINOPHEN\TRAMADOL
     Indication: Cancer pain
     Dosage: 1 DOSAGE FORM, QID
     Route: 048
     Dates: start: 20220725
  43. ZOLMITRIPTAN [Concomitant]
     Active Substance: ZOLMITRIPTAN
     Indication: Migraine
     Dosage: 2.5 MILLIGRAM, PRN
     Route: 048
     Dates: start: 20220725
  44. POLARAMINE [Concomitant]
     Active Substance: DEXCHLORPHENIRAMINE MALEATE
     Indication: Premedication
     Dosage: 5 MILLIGRAM
     Route: 042
     Dates: start: 20220907
  45. AMOXICILLIN TRIHYDRATE [Concomitant]
     Active Substance: AMOXICILLIN
     Indication: Prophylaxis
     Dosage: 500 MILLIGRAM, TID
     Route: 048
     Dates: start: 20220907, end: 20220921

REACTIONS (5)
  - Heat illness [Recovered/Resolved]
  - Adrenal insufficiency [Recovered/Resolved with Sequelae]
  - Cholangitis [Recovered/Resolved]
  - Metastases to liver [Unknown]
  - Metastases to bone [Unknown]

NARRATIVE: CASE EVENT DATE: 20220709
